FAERS Safety Report 9363491 (Version 1)
Quarter: 2013Q2

REPORT INFORMATION
  Report Type: Spontaneous
  Country: FR (occurrence: FR)
  Receive Date: 20130624
  Receipt Date: 20130624
  Transmission Date: 20140414
  Serious: Yes (Hospitalization)
  Sender: FDA-Public Use
  Company Number: FR-SANOFI-AVENTIS-2013SA020386

PATIENT
  Age: 86 Year
  Sex: Female

DRUGS (6)
  1. KERLONE [Suspect]
     Indication: PRODUCT USED FOR UNKNOWN INDICATION
     Route: 048
     Dates: end: 20121212
  2. LASILIX [Concomitant]
  3. DIAMICRON [Concomitant]
  4. PREVISCAN [Concomitant]
  5. BIPRETERAX [Concomitant]
  6. AMLOR [Concomitant]

REACTIONS (2)
  - Cardiac failure [Recovered/Resolved]
  - Bradycardia [Recovered/Resolved]
